FAERS Safety Report 8275451-8 (Version None)
Quarter: 2012Q2

REPORT INFORMATION
  Report Type: 
  Country: None (occurrence: None)
  Receive Date: 20120411
  Receipt Date: 20120406
  Transmission Date: 20120825
  Serious: Yes (Other)
  Sender: FDA-Public Use
  Company Number: CA-BAXTER-2011BH040439

PATIENT
  Sex: Male

DRUGS (1)
  1. GAMMAGARD LIQUID [Suspect]
     Route: 065
     Dates: start: 20110615, end: 20110615

REACTIONS (5)
  - HYPERTENSION [None]
  - INFLAMMATION [None]
  - PYREXIA [None]
  - CHILLS [None]
  - TACHYCARDIA [None]
